FAERS Safety Report 6096489-5 (Version None)
Quarter: 2009Q1

REPORT INFORMATION
  Report Type: 
  Country: None (occurrence: None)
  Receive Date: 20090227
  Receipt Date: 20090216
  Transmission Date: 20090719
  Serious: Yes (Other)
  Sender: FDA-Public Use
  Company Number: US-ELI_LILLY_AND_COMPANY-US200902003669

PATIENT
  Sex: Female

DRUGS (2)
  1. FORTEO [Suspect]
     Dates: end: 20070101
  2. FORTEO [Suspect]

REACTIONS (6)
  - CHEST PAIN [None]
  - DYSPNOEA [None]
  - GASTROINTESTINAL DISORDER [None]
  - HEART RATE INCREASED [None]
  - HEART RATE IRREGULAR [None]
  - UTERINE CANCER [None]
